FAERS Safety Report 4602524-0 (Version None)
Quarter: 2005Q1

REPORT INFORMATION
  Report Type: 
  Country: None (occurrence: None)
  Receive Date: 20050307
  Receipt Date: 20050218
  Transmission Date: 20050727
  Serious: Yes (Other)
  Sender: FDA-Public Use
  Company Number: 2005036669

PATIENT
  Age: 70 Year
  Sex: Female
  Weight: 95.2554 kg

DRUGS (8)
  1. BEXTRA [Suspect]
     Indication: ARTHRITIS
     Dosage: (1 D)
     Dates: start: 20040901, end: 20041001
  2. MELOXICAM [Suspect]
     Indication: ILL-DEFINED DISORDER
  3. PREDISONE (PREDNISONE) [Concomitant]
  4. LEVOTHYROXINE SODIUM [Concomitant]
  5. LANSOPRAZOLE [Concomitant]
  6. TRANDOLAPRIL (TRANDOLAPRIL) [Concomitant]
  7. POTASSIUM ACETATE [Concomitant]
  8. METOLAZONE [Concomitant]

REACTIONS (6)
  - CARDIAC FAILURE CONGESTIVE [None]
  - DRUG HYPERSENSITIVITY [None]
  - FLUID RETENTION [None]
  - JOINT RANGE OF MOTION DECREASED [None]
  - RENAL FAILURE [None]
  - SWELLING [None]
